FAERS Safety Report 9691206 (Version 2)
Quarter: 2013Q4

REPORT INFORMATION
  Report Type: Report from Study
  Country: DE (occurrence: DE)
  Receive Date: 20131115
  Receipt Date: 20131120
  Transmission Date: 20140711
  Serious: Yes (Other)
  Sender: FDA-Public Use
  Company Number: DE-ROCHE-1303465

PATIENT
  Age: 38 Year
  Sex: Male
  Weight: 70 kg

DRUGS (4)
  1. RANIBIZUMAB [Suspect]
     Indication: DIABETIC RETINAL OEDEMA
     Dosage: 0.5 MG/0.05 ML
     Route: 050
     Dates: start: 20130423
  2. RANIBIZUMAB [Suspect]
     Dosage: 0.5 MG/0.05 ML,
     Route: 050
     Dates: start: 20130909
  3. RANIBIZUMAB [Suspect]
     Dosage: 0.5 MG/0.05 ML,
     Route: 050
     Dates: start: 20131108
  4. INSULIN [Concomitant]
     Route: 065
     Dates: start: 1996

REACTIONS (1)
  - Retinal vein occlusion [Not Recovered/Not Resolved]
